FAERS Safety Report 9458370 (Version 2)
Quarter: 2013Q3

REPORT INFORMATION
  Report Type: Spontaneous
  Country: FI (occurrence: FI)
  Receive Date: 20130814
  Receipt Date: 20130902
  Transmission Date: 20140515
  Serious: Yes (Other)
  Sender: FDA-Public Use
  Company Number: FI-AMGEN-FINSP2013055951

PATIENT
  Age: 83 Year
  Sex: Female
  Weight: 62 kg

DRUGS (6)
  1. ARANESP [Suspect]
     Indication: NEPHROGENIC ANAEMIA
     Dosage: 60 MUG, UNK
     Route: 058
     Dates: start: 20130131
  2. APURIN [Concomitant]
  3. CALCICHEW [Concomitant]
  4. COZAAR [Concomitant]
  5. ETALPHA [Concomitant]
  6. FURESIS [Concomitant]

REACTIONS (2)
  - Azotaemia [Unknown]
  - Headache [Recovered/Resolved]
